FAERS Safety Report 11326247 (Version 1)
Quarter: 2015Q3

REPORT INFORMATION
  Report Type: Spontaneous
  Country: BR (occurrence: BR)
  Receive Date: 20150731
  Receipt Date: 20150731
  Transmission Date: 20151125
  Serious: Yes (Other)
  Sender: FDA-Public Use
  Company Number: BR-AMGEN-BRASP2015076616

PATIENT
  Age: 54 Year
  Sex: Female
  Weight: 74 kg

DRUGS (5)
  1. CALCIUM [Concomitant]
     Active Substance: CALCIUM
     Dosage: 1 TABLET, DAILY
  2. ARAVA [Concomitant]
     Active Substance: LEFLUNOMIDE
     Dosage: 50 MG (1 TABLET), DAILY
     Route: 048
  3. ENBREL [Suspect]
     Active Substance: ETANERCEPT
     Indication: RHEUMATOID ARTHRITIS
     Dosage: 50 MG, 1X/WEEK
     Route: 058
     Dates: start: 20140215, end: 201506
  4. PREDNISONE. [Concomitant]
     Active Substance: PREDNISONE
     Dosage: 5 MG (1 TABLET), DAILY
  5. METHOTREXATE [Concomitant]
     Active Substance: METHOTREXATE
     Dosage: 150 MG (3 TABLETS), PER WEEK

REACTIONS (2)
  - Blood pressure increased [Unknown]
  - Breast mass [Unknown]

NARRATIVE: CASE EVENT DATE: 201503
